FAERS Safety Report 9165048 (Version 1)
Quarter: 2013Q1

REPORT INFORMATION
  Report Type: Spontaneous
  Country: DE (occurrence: DE)
  Receive Date: 20130315
  Receipt Date: 20130315
  Transmission Date: 20140127
  Serious: Yes (Life-Threatening)
  Sender: FDA-Public Use
  Company Number: DE-B.I. PHARMACEUTICALS,INC./RIDGEFIELD-2013-DE-00652DE

PATIENT
  Age: 94 Year
  Sex: Female
  Weight: 55 kg

DRUGS (3)
  1. PRADAXA [Suspect]
     Indication: EMBOLISM ARTERIAL
     Dosage: 220 NR
     Dates: start: 20130117
  2. METOSUCC [Concomitant]
     Dosage: AS REQUIRED: MAX. 2 DUE TO RR
     Dates: start: 20130117
  3. PAMI [Concomitant]
     Dosage: AS REQUIRED: MAX. 5 DUE TO RR

REACTIONS (1)
  - Embolism [Not Recovered/Not Resolved]
